FAERS Safety Report 12006098 (Version 1)
Quarter: 2016Q1

REPORT INFORMATION
  Report Type: Report from Study
  Country: US (occurrence: US)
  Receive Date: 20160204
  Receipt Date: 20160204
  Transmission Date: 20160526
  Serious: No
  Sender: FDA-Public Use
  Company Number: US-ABBVIE-15K-163-1428717-00

PATIENT
  Age: 49 Year
  Sex: Female

DRUGS (2)
  1. HUMIRA [Suspect]
     Active Substance: ADALIMUMAB
     Indication: RHEUMATOID ARTHRITIS
     Route: 065
     Dates: start: 20150701
  2. PREDNISONE. [Concomitant]
     Active Substance: PREDNISONE
     Indication: ORAL DISORDER
     Route: 048

REACTIONS (7)
  - Musculoskeletal stiffness [Unknown]
  - Insomnia [Recovered/Resolved]
  - Fatigue [Recovering/Resolving]
  - Back pain [Recovering/Resolving]
  - Flank pain [Unknown]
  - Joint stiffness [Unknown]
  - Peripheral swelling [Unknown]

NARRATIVE: CASE EVENT DATE: 201507
